FAERS Safety Report 24696391 (Version 1)
Quarter: 2024Q4

REPORT INFORMATION
  Report Type: Spontaneous
  Country: NL (occurrence: NL)
  Receive Date: 20241204
  Receipt Date: 20241204
  Transmission Date: 20250115
  Serious: Yes (Other)
  Sender: TEVA
  Company Number: None

PATIENT
  Age: 31 Year
  Sex: Female
  Weight: 61 kg

DRUGS (1)
  1. TEMAZEPAM [Suspect]
     Active Substance: TEMAZEPAM
     Indication: Sleep disorder
     Dosage: BRAND NAME NOT SPECIFIED, 2 OUT OF 10 OR 3 OUT OF 10
     Route: 048
     Dates: start: 20241003, end: 20241116

REACTIONS (2)
  - Eating disorder [Recovered/Resolved]
  - Weight increased [Recovered/Resolved]
